FAERS Safety Report 6688042-7 (Version None)
Quarter: 2010Q2

REPORT INFORMATION
  Report Type: 
  Country: None (occurrence: None)
  Receive Date: 20100420
  Receipt Date: 20100409
  Transmission Date: 20101027
  Serious: Yes (Hospitalization)
  Sender: FDA-Public Use
  Company Number: PHHY2010MX13334

PATIENT
  Sex: Female

DRUGS (1)
  1. DIOVAN HCT [Suspect]
     Indication: HYPERTENSION
     Dosage: 1 TABLET (160/25 MG) PER DAY
     Route: 048
     Dates: start: 20100222

REACTIONS (6)
  - CONCOMITANT DISEASE AGGRAVATED [None]
  - GALLBLADDER DISORDER [None]
  - GALLBLADDER OPERATION [None]
  - LUNG DISORDER [None]
  - PANCREATITIS [None]
  - SURGERY [None]
